FAERS Safety Report 15274748 (Version 1)
Quarter: 2018Q3

REPORT INFORMATION
  Report Type: Report from Study
  Country: PL (occurrence: PL)
  Receive Date: 20180814
  Receipt Date: 20180814
  Transmission Date: 20181010
  Serious: Yes (Hospitalization)
  Sender: FDA-Public Use
  Company Number: PL-TEVA-2018-PL-939921

PATIENT
  Age: 71 Year
  Sex: Male

DRUGS (13)
  1. VIGANTOLETTEN [Concomitant]
     Active Substance: CHOLECALCIFEROL
     Route: 065
  2. CONTROLOC [Concomitant]
     Active Substance: PANTOPRAZOLE SODIUM
     Route: 065
  3. VENTAVIS [Suspect]
     Active Substance: ILOPROST
     Indication: PULMONARY ARTERIAL HYPERTENSION
     Dosage: 15 MICROGRAM DAILY; 2.5 ?G, 6ID
     Route: 055
     Dates: start: 20170823, end: 20171024
  4. FINASTERIDE. [Concomitant]
     Active Substance: FINASTERIDE
     Route: 065
  5. CALPEROS [Concomitant]
     Active Substance: CALCIUM CARBONATE
     Route: 065
  6. METYPRED [Concomitant]
     Active Substance: METHYLPREDNISOLONE
     Route: 065
  7. OXYGEN. [Concomitant]
     Active Substance: OXYGEN
     Route: 065
  8. MACITENTAN [Concomitant]
     Active Substance: MACITENTAN
     Route: 065
  9. ROSUVASTATIN CALCIUM. [Concomitant]
     Active Substance: ROSUVASTATIN CALCIUM
     Route: 065
  10. ITOPRIDE HYDROCHLORIDE [Concomitant]
     Active Substance: ITOPRIDE HYDROCHLORIDE
     Route: 065
  11. CITAL [Concomitant]
     Route: 065
  12. SILDENAFIL. [Suspect]
     Active Substance: SILDENAFIL
     Dosage: 60 MILLIGRAM DAILY;
     Route: 048
     Dates: start: 20170822
  13. ACARD [Concomitant]
     Active Substance: ASPIRIN
     Route: 065

REACTIONS (1)
  - Abdominal pain [Recovered/Resolved]

NARRATIVE: CASE EVENT DATE: 20171025
